FAERS Safety Report 6380783-4 (Version None)
Quarter: 2009Q3

REPORT INFORMATION
  Report Type: 
  Country: None (occurrence: None)
  Receive Date: 20090929
  Receipt Date: 20090918
  Transmission Date: 20100115
  Serious: Yes (Hospitalization)
  Sender: FDA-Public Use
  Company Number: PL-BAXTER-2009BH014277

PATIENT
  Age: 9 Year
  Sex: Female
  Weight: 32 kg

DRUGS (1)
  1. GAMMAGARD LIQUID [Suspect]
     Indication: LEUKAEMIA
     Route: 042
     Dates: start: 20090824, end: 20090824

REACTIONS (2)
  - DYSPNOEA [None]
  - ERYTHEMA [None]
